FAERS Safety Report 4734304-X (Version None)
Quarter: 2005Q3

REPORT INFORMATION
  Report Type: 
  Country: None (occurrence: None)
  Receive Date: 20050729
  Receipt Date: 20050707
  Transmission Date: 20060218
  Serious: Yes (Hospitalization)
  Sender: FDA-Public Use
  Company Number: USA0507102556

PATIENT
  Age: 72 Year
  Sex: Male

DRUGS (1)
  1. STRATTERA [Suspect]
     Dosage: 120 MG DAY
     Dates: start: 20050201, end: 20050705

REACTIONS (5)
  - DYSPNOEA [None]
  - FATIGUE [None]
  - LIVER FUNCTION TEST ABNORMAL [None]
  - PYREXIA [None]
  - URINARY TRACT INFECTION [None]
